FAERS Safety Report 21803306 (Version 3)
Quarter: 2023Q2

REPORT INFORMATION
  Report Type: Report from Study
  Country: US (occurrence: US)
  Receive Date: 20230101
  Receipt Date: 20230426
  Transmission Date: 20230722
  Serious: Yes (Other)
  Sender: FDA-Public Use
  Company Number: US-ABBVIE-4254363

PATIENT
  Age: 69 Year
  Sex: Female
  Weight: 92 kg

DRUGS (2)
  1. HUMIRA [Suspect]
     Active Substance: ADALIMUMAB
     Indication: Psoriasis
     Dosage: FORM STRENGTH: 40 MG
     Route: 058
     Dates: start: 20160727, end: 2022
  2. HUMIRA [Suspect]
     Active Substance: ADALIMUMAB
     Dosage: FORM STRENGTH: 40 MG
     Route: 058
     Dates: start: 20190220

REACTIONS (5)
  - Lower limb fracture [Not Recovered/Not Resolved]
  - Peripheral swelling [Unknown]
  - Ligament sprain [Not Recovered/Not Resolved]
  - Fall [Unknown]
  - Pain in extremity [Unknown]

NARRATIVE: CASE EVENT DATE: 20221201
